FAERS Safety Report 8166039-8 (Version None)
Quarter: 2012Q1

REPORT INFORMATION
  Report Type: 
  Country: None (occurrence: None)
  Receive Date: 20120227
  Receipt Date: 20110613
  Transmission Date: 20120608
  Serious: No
  Sender: FDA-Public Use
  Company Number: US-MYLANLABS-2011S1003735

PATIENT
  Age: 60 Year
  Sex: Female
  Weight: 57.15 kg

DRUGS (6)
  1. FIORICET [Concomitant]
  2. AMNESTEEM [Suspect]
     Indication: ACNE CYSTIC
     Route: 048
     Dates: start: 20100621, end: 20110218
  3. BUPROPION HCL [Concomitant]
  4. DEPAKOTE [Concomitant]
  5. CITALOPRAM HYDROBROMIDE [Concomitant]
  6. HORMONE THERAPY [Concomitant]

REACTIONS (3)
  - DEPRESSED MOOD [None]
  - DEPRESSION [None]
  - LIPIDS INCREASED [None]
